FAERS Safety Report 7477926-8 (Version None)
Quarter: 2011Q2

REPORT INFORMATION
  Report Type: 
  Country: None (occurrence: None)
  Receive Date: 20110513
  Receipt Date: 20110509
  Transmission Date: 20111010
  Serious: Yes (Hospitalization, Other)
  Sender: FDA-Public Use
  Company Number: US-BAYER-2011-005582

PATIENT
  Age: 62 Year
  Sex: Male
  Weight: 111 kg

DRUGS (53)
  1. LASIX [Concomitant]
     Dosage: 20 MG, QD
     Route: 048
     Dates: start: 20030101
  2. MIDAZOLAM HCL [Concomitant]
     Dosage: 1-2 MG, UNK
     Route: 042
     Dates: start: 20050504
  3. INSULIN [Concomitant]
     Dosage: TITRATED
     Route: 042
     Dates: start: 20050504
  4. CARDIZEM [Concomitant]
     Dosage: TITRATED
     Route: 042
     Dates: start: 20050504
  5. LASIX [Concomitant]
     Dosage: 40-60MG
     Route: 042
     Dates: start: 20050505
  6. PLAVIX [Concomitant]
     Dosage: 75 MG, QD, LONG TERM USE
  7. METFORMIN HCL [Concomitant]
     Dosage: 850 MG, QD, LONG TERM USE
     Route: 048
  8. ATIVAN [Concomitant]
     Dosage: 2 MG PREOPERATIVE, UNK
     Route: 042
  9. DARVOCET-N 50 [Concomitant]
     Indication: PAIN
     Dosage: 650 MG, PRN
     Route: 048
     Dates: start: 20050503
  10. PAVULON [Concomitant]
     Dosage: 15 MG, UNK
     Route: 042
     Dates: start: 20050504, end: 20050504
  11. PEPCID [Concomitant]
     Dosage: 20 MG, BID
     Route: 048
     Dates: start: 20050504
  12. PERCOCET [Concomitant]
     Dosage: 5-10 MG
     Route: 048
  13. OMNIPAQUE 140 [Concomitant]
     Indication: CATHETERISATION CARDIAC
     Dosage: 175 ML, UNK
  14. BLOOD CELLS, PACKED HUMAN [Concomitant]
     Dosage: 2 U, UNK
     Dates: start: 20050516
  15. CELEBREX [Concomitant]
     Dosage: 200 MG, QD
  16. ALBUTEROL [Concomitant]
     Dosage: INHALATION, PRN LONG TERM USE
  17. AEROBID [Concomitant]
     Dosage: INHALATION, PRN LONG TERM USE
  18. LOPRESSOR [Concomitant]
     Dosage: 25 MG, BID
     Route: 048
     Dates: start: 20050505
  19. IMDUR [Concomitant]
     Dosage: 30 MG, QD
     Route: 048
     Dates: start: 20050504
  20. HEPARIN [Concomitant]
     Dosage: 600 MG, UNK
     Route: 042
     Dates: start: 20050504, end: 20050504
  21. TRASYLOL [Suspect]
     Dosage: 50ML/HR
     Route: 042
     Dates: start: 20050504, end: 20050504
  22. ATIVAN [Concomitant]
     Dosage: 4 MG, UNK
     Route: 042
     Dates: start: 20050504, end: 20050504
  23. ZEMURON [Concomitant]
     Dosage: 100 MG, UNK
     Route: 042
     Dates: start: 20050504, end: 20050504
  24. SOLU-MEDROL [Concomitant]
     Dosage: 500 MG, UNK
     Route: 042
     Dates: start: 20050504, end: 20050504
  25. CEFUROXIME [Concomitant]
     Dosage: 1.5 G, BID
     Route: 042
     Dates: start: 20050504, end: 20050504
  26. TRASYLOL [Suspect]
     Dosage: 2000000 KIU, PUMP PRIME
     Dates: start: 20050504
  27. SEVOFLURANE [Concomitant]
     Dosage: INHALED
     Dates: start: 20050504, end: 20050504
  28. ETOMIDATE [Concomitant]
     Dosage: 16 MG, UNK
     Route: 042
     Dates: start: 20050504, end: 20050504
  29. PROTAMINE SULFATE [Concomitant]
     Dosage: 200 MG, UNK
     Route: 042
     Dates: start: 20050504, end: 20050504
  30. NITROGLYCERIN [Concomitant]
     Dosage: LONGTERM USE
     Route: 062
  31. PRILOSEC [Concomitant]
     Route: 048
  32. LORAZEPAM [Concomitant]
     Dosage: UNK UNK, PRN, LONG TERM USE
     Route: 048
  33. CARDENE [Concomitant]
     Indication: BLOOD PRESSURE ABNORMAL
     Dosage: TITRATED
     Route: 042
     Dates: start: 20050504
  34. PRAVACHOL [Concomitant]
     Dosage: 80 MG, QD
     Route: 048
     Dates: start: 20050503
  35. BLOOD CELLS, PACKED HUMAN [Concomitant]
     Dosage: 2 U, UNK
     Dates: start: 20050523
  36. AMIODARONE HCL [Concomitant]
     Indication: ATRIAL FIBRILLATION
     Dosage: UNK
     Dates: start: 20050523
  37. TRASYLOL [Suspect]
     Indication: CORONARY ARTERY BYPASS
     Dosage: 1 ML, UNK
     Route: 042
     Dates: start: 20050504
  38. GLYBURIDE [Concomitant]
     Dosage: 6 MG, LONG TERM USE
     Route: 048
  39. ATROVENT [Concomitant]
     Dosage: INHALATION, PRN LONG TERM USE
  40. COREG [Concomitant]
     Dosage: 12.5 MG, BID
     Route: 048
     Dates: start: 20030722
  41. AVANDIA [Concomitant]
     Dosage: 4 MG, QD LONG TERM USE
     Route: 048
  42. TORADOL [Concomitant]
     Dosage: 30 MG, EVERY 6 HOURS FOR 24 HOURS, THEN DISCONTINUED
     Route: 042
     Dates: start: 20050505, end: 20050506
  43. LANOXIN [Concomitant]
     Dosage: 0.25 MG, QD
     Dates: start: 20050504
  44. TRASYLOL [Suspect]
     Dosage: 400ML/HR UNK, UNK
     Dates: start: 20050504, end: 20050504
  45. ASPIRIN [Concomitant]
     Dosage: 325 MG, QD
     Route: 048
  46. LIPITOR [Concomitant]
     Dosage: 80 MG, QD LONG TERM USE
     Route: 048
  47. LOVENOX [Concomitant]
     Dosage: 30 MG, BID
     Route: 058
     Dates: start: 20050504
  48. REGLAN [Concomitant]
     Dosage: 10 MG, PREOPERATIVE
     Route: 042
     Dates: start: 20050504
  49. DEMADEX [Concomitant]
     Dosage: DAILY DOSE 80 MG
     Route: 042
     Dates: start: 20050506, end: 20050506
  50. FENTANYL [Concomitant]
     Dosage: 25 ?G, UNK
     Route: 042
     Dates: start: 20050504, end: 20050504
  51. TICLID [Concomitant]
     Route: 048
  52. LEVAQUIN [Concomitant]
     Indication: URINARY TRACT INFECTION
     Dosage: UNK
     Route: 042
     Dates: start: 20050513, end: 20050519
  53. AMOXICILLIN [Concomitant]
     Dosage: UNK
     Dates: start: 20050519

REACTIONS (11)
  - RENAL IMPAIRMENT [None]
  - PAIN [None]
  - EMOTIONAL DISTRESS [None]
  - RENAL FAILURE [None]
  - ANXIETY [None]
  - UNEVALUABLE EVENT [None]
  - RENAL INJURY [None]
  - INJURY [None]
  - ANHEDONIA [None]
  - STRESS [None]
  - FEAR [None]
